FAERS Safety Report 19798005 (Version 1)
Quarter: 2021Q3

REPORT INFORMATION
  Report Type: Spontaneous
  Country: RU (occurrence: RU)
  Receive Date: 20210907
  Receipt Date: 20210907
  Transmission Date: 20211014
  Serious: Yes (Other)
  Sender: FDA-Public Use
  Company Number: RU-BAYER-2021-202135

PATIENT
  Sex: Female

DRUGS (1)
  1. MIRENA [Suspect]
     Active Substance: LEVONORGESTREL
     Indication: HEAVY MENSTRUAL BLEEDING
     Dosage: 20 ?G, CONT
     Route: 015
     Dates: start: 202101, end: 20210827

REACTIONS (2)
  - Endometrial thickening [None]
  - Vaginal haemorrhage [None]

NARRATIVE: CASE EVENT DATE: 202101
